FAERS Safety Report 4449806-3 (Version None)
Quarter: 2004Q3

REPORT INFORMATION
  Report Type: 
  Country: None (occurrence: None)
  Receive Date: 20040802
  Receipt Date: 20040421
  Transmission Date: 20050211
  Serious: No
  Sender: FDA-Public Use
  Company Number: 2004-115440-NL

PATIENT
  Age: 26 Year
  Sex: Female
  Weight: 81.8 kg

DRUGS (5)
  1. NUVARING [Suspect]
     Indication: CONTRACEPTION
     Dosage: DF DAILY VAGINAL
     Route: 067
     Dates: start: 20040418
  2. NUVARING [Suspect]
     Indication: MENSTRUAL DISORDER
     Dosage: DF DAILY VAGINAL
     Route: 067
     Dates: start: 20040418
  3. XANAX [Concomitant]
  4. ALBUTEROL [Concomitant]
  5. TYLENOL [Concomitant]

REACTIONS (4)
  - BLOOD PRESSURE INCREASED [None]
  - FLUID RETENTION [None]
  - MUSCLE SPASMS [None]
  - WEIGHT INCREASED [None]
